FAERS Safety Report 6340725-4 (Version None)
Quarter: 2009Q3

REPORT INFORMATION
  Report Type: 
  Country: None (occurrence: None)
  Receive Date: 20090904
  Receipt Date: 20090827
  Transmission Date: 20100115
  Serious: Yes (Hospitalization)
  Sender: FDA-Public Use
  Company Number: JP-JNJFOC-20090809398

PATIENT
  Sex: Female
  Weight: 51 kg

DRUGS (7)
  1. DOXIL [Suspect]
     Route: 042
  2. DOXIL [Suspect]
     Indication: OVARIAN CANCER RECURRENT
     Route: 042
  3. DECADRON [Concomitant]
     Route: 048
  4. DECADRON [Concomitant]
     Route: 048
  5. DECADRON [Concomitant]
     Indication: PROPHYLAXIS
     Route: 048
  6. RAMOSETRON HYDROCHLORIDE [Concomitant]
     Indication: PROPHYLAXIS
     Route: 042
  7. THIAMINE MONOPHOSPHATE DISULFIDE [Concomitant]
     Indication: PROPHYLAXIS
     Route: 042

REACTIONS (1)
  - INTERSTITIAL LUNG DISEASE [None]
